FAERS Safety Report 6073844-0 (Version None)
Quarter: 2009Q1

REPORT INFORMATION
  Report Type: 
  Country: None (occurrence: None)
  Receive Date: 20090209
  Receipt Date: 20090209
  Transmission Date: 20090719
  Serious: Yes (Hospitalization)
  Sender: FDA-Public Use
  Company Number: None

PATIENT
  Age: 61 Year
  Sex: Female

DRUGS (1)
  1. LYRICA [Suspect]
     Dosage: 150MG BID PO
     Route: 048
     Dates: start: 20081021, end: 20090113

REACTIONS (2)
  - LETHARGY [None]
  - MENTAL STATUS CHANGES [None]
